FAERS Safety Report 19348387 (Version 3)
Quarter: 2022Q1

REPORT INFORMATION
  Report Type: Spontaneous
  Country: JP (occurrence: JP)
  Receive Date: 20210531
  Receipt Date: 20220319
  Transmission Date: 20220423
  Serious: Yes (Hospitalization, Other)
  Sender: FDA-Public Use
  Company Number: JP-TAKEDA-2021TJP026196

PATIENT
  Age: 72 Year
  Sex: Female

DRUGS (3)
  1. VECTIBIX [Suspect]
     Active Substance: PANITUMUMAB
     Indication: Colon cancer recurrent
     Dosage: UNK
     Route: 050
  2. IRINOTECAN HYDROCHLORIDE [Suspect]
     Active Substance: IRINOTECAN HYDROCHLORIDE
     Indication: Colon cancer recurrent
     Dosage: UNK
     Route: 065
  3. TS-1 [Suspect]
     Active Substance: GIMERACIL\OTERACIL\TEGAFUR
     Indication: Colon cancer recurrent
     Dosage: UNK
     Route: 065

REACTIONS (1)
  - Pneumatosis intestinalis [Recovered/Resolved]
